FAERS Safety Report 25894826 (Version 2)
Quarter: 2025Q4

REPORT INFORMATION
  Report Type: Spontaneous
  Country: JP (occurrence: JP)
  Receive Date: 20251008
  Receipt Date: 20251128
  Transmission Date: 20260117
  Serious: Yes (Other)
  Sender: TEVA
  Company Number: JP-TEVA-VS-3371408

PATIENT
  Age: 82 Year
  Sex: Male

DRUGS (3)
  1. TRISENOX [Suspect]
     Active Substance: ARSENIC TRIOXIDE
     Indication: Acute promyelocytic leukaemia
     Dosage: INTRAVENOUS DRIP
     Route: 065
  2. AMINO ACIDS, SOURCE UNSPECIFIED [Concomitant]
     Active Substance: AMINO ACIDS, SOURCE UNSPECIFIED
     Indication: Product used for unknown indication
     Dosage: ORAL INTAKE REDUCED
     Route: 048
  3. VESANOID [Suspect]
     Active Substance: TRETINOIN
     Indication: Product used for unknown indication
     Route: 048

REACTIONS (3)
  - Neutropenia [Recovered/Resolved]
  - Disseminated intravascular coagulation [Recovered/Resolved]
  - Vascular device infection [Recovered/Resolved]

NARRATIVE: CASE EVENT DATE: 20250531
